FAERS Safety Report 14714183 (Version 1)
Quarter: 2018Q2

REPORT INFORMATION
  Report Type: Spontaneous
  Country: US (occurrence: US)
  Receive Date: 20180404
  Receipt Date: 20180404
  Transmission Date: 20180711
  Serious: No
  Sender: FDA-Public Use
  Company Number: US-ARBOR PHARMACEUTICALS, LLC-US-2017ARB000952

PATIENT

DRUGS (2)
  1. SKLICE [Suspect]
     Active Substance: IVERMECTIN
     Indication: LICE INFESTATION
     Dosage: UNK, SINGLE
     Route: 061
     Dates: start: 201710, end: 201710
  2. SKLICE [Suspect]
     Active Substance: IVERMECTIN
     Dosage: UNK, SINGLE
     Route: 061
     Dates: start: 201709, end: 201709

REACTIONS (5)
  - Sleep disorder [Recovered/Resolved]
  - Asthenia [Recovered/Resolved]
  - Dizziness [Recovered/Resolved]
  - Feeling abnormal [Recovered/Resolved]
  - Malaise [Recovered/Resolved]

NARRATIVE: CASE EVENT DATE: 201710
